FAERS Safety Report 11379666 (Version 3)
Quarter: 2015Q3

REPORT INFORMATION
  Report Type: Spontaneous
  Country: ES (occurrence: ES)
  Receive Date: 20150814
  Receipt Date: 20150930
  Transmission Date: 20151125
  Serious: Yes (Life-Threatening, Hospitalization, Other)
  Sender: FDA-Public Use
  Company Number: ES-ACCORD-032953

PATIENT
  Age: 62 Year
  Sex: Male

DRUGS (5)
  1. FOLINIC ACID [Suspect]
     Active Substance: LEUCOVORIN
     Indication: COLORECTAL CANCER
     Dosage: RECEIVED CYCLICAL THERAPY?FOLFIRI REGIMEN?RECEIVED FROM SEP-2008 TO MAR-2009
     Dates: start: 200809
  2. OXALIPLATIN. [Suspect]
     Active Substance: OXALIPLATIN
     Indication: COLORECTAL CANCER
     Dosage: RECEIVED CYCLICAL THERAPY?FOLFOX REGIMEN
     Dates: start: 200909
  3. BEVACIZUMAB [Suspect]
     Active Substance: BEVACIZUMAB
     Indication: COLORECTAL CANCER
     Dosage: RECEIVED CYCLICAL THERAPY?FOLFIRI REGIMEN?RECEIVED FROM SEP-2008 TO MAR-2009
     Dates: start: 200809
  4. IRINOTECAN [Suspect]
     Active Substance: IRINOTECAN
     Indication: COLORECTAL CANCER
     Dosage: RECEIVED CYCLICAL THERAPY?FOLFIRI REGIMEN?RECEIVED FROM SEP-2008 TO MAR-2009
     Dates: start: 200809
  5. FLUOROURACIL. [Suspect]
     Active Substance: FLUOROURACIL
     Indication: COLORECTAL CANCER
     Dates: start: 200701

REACTIONS (9)
  - Onychomadesis [Unknown]
  - Neutropenia [Unknown]
  - Diarrhoea [Unknown]
  - Lung disorder [Unknown]
  - Mucosal inflammation [Unknown]
  - Radiculopathy [Unknown]
  - Performance status decreased [Unknown]
  - Palmar-plantar erythrodysaesthesia syndrome [Unknown]
  - Asthenia [Unknown]
